FAERS Safety Report 12620246 (Version 2)
Quarter: 2016Q4

REPORT INFORMATION
  Report Type: Spontaneous
  Country: US (occurrence: US)
  Receive Date: 20160803
  Receipt Date: 20161103
  Transmission Date: 20170207
  Serious: No
  Sender: FDA-Public Use
  Company Number: US-OTSUKA-2016_017098

PATIENT
  Sex: Female

DRUGS (2)
  1. ONZETRA [Suspect]
     Active Substance: SUMATRIPTAN SUCCINATE
     Indication: MIGRAINE
     Dosage: 11 MG, (EACH NOSTRIL AT THE ONSET OF A MIGRAINE)
     Route: 045
  2. SUMATRIPTAN. [Suspect]
     Active Substance: SUMATRIPTAN
     Indication: PRODUCT USED FOR UNKNOWN INDICATION
     Dosage: UNK INJECTION
     Route: 065

REACTIONS (3)
  - Headache [Recovered/Resolved]
  - Vomiting [Unknown]
  - Product quality issue [Unknown]
